FAERS Safety Report 7168336-1 (Version None)
Quarter: 2010Q4

REPORT INFORMATION
  Report Type: 
  Country: None (occurrence: None)
  Receive Date: 20101216
  Receipt Date: 20101208
  Transmission Date: 20110411
  Serious: Yes (Hospitalization, Other)
  Sender: FDA-Public Use
  Company Number: US-ABBOTT-10P-163-0690505-00

PATIENT
  Age: 73 Year
  Sex: Female
  Weight: 65.376 kg

DRUGS (10)
  1. SYNTHROID [Suspect]
     Indication: PRODUCT USED FOR UNKNOWN INDICATION
  2. SUNITINIB MALATE: PLACEBO [Suspect]
     Indication: PRODUCT USED FOR UNKNOWN INDICATION
     Dosage: CYCLIC: ONCE EVERY 21 DAYS
     Route: 048
     Dates: start: 20100827
  3. LISINOPRIL [Concomitant]
     Indication: PRODUCT USED FOR UNKNOWN INDICATION
  4. TRAVOPROSE EYE DROPS [Concomitant]
     Indication: PRODUCT USED FOR UNKNOWN INDICATION
     Route: 047
  5. ASPIRIN [Concomitant]
     Indication: PRODUCT USED FOR UNKNOWN INDICATION
  6. MELOXICAM [Concomitant]
     Indication: PRODUCT USED FOR UNKNOWN INDICATION
  7. MULTIPLE VITAMINS [Concomitant]
     Indication: PRODUCT USED FOR UNKNOWN INDICATION
  8. ASCORBIC ACID [Concomitant]
     Indication: PRODUCT USED FOR UNKNOWN INDICATION
  9. ERGOCALCIFEROL [Concomitant]
     Indication: PRODUCT USED FOR UNKNOWN INDICATION
  10. TOCOPHEROL CONCENTRATE CAP [Concomitant]
     Indication: PRODUCT USED FOR UNKNOWN INDICATION

REACTIONS (4)
  - HYPOMAGNESAEMIA [None]
  - KIDNEY INFECTION [None]
  - NON-SMALL CELL LUNG CANCER [None]
  - VOMITING [None]
